FAERS Safety Report 8558551-4 (Version None)
Quarter: 2012Q3

REPORT INFORMATION
  Report Type: 
  Country: None (occurrence: None)
  Receive Date: 20120801
  Receipt Date: 20120724
  Transmission Date: 20120928
  Serious: Yes (Hospitalization)
  Sender: FDA-Public Use
  Company Number: IT-TEVA-350122ISR

PATIENT
  Sex: Female

DRUGS (9)
  1. NORVASC [Concomitant]
     Dates: start: 20070512, end: 20120606
  2. ACYCLOVIR [Suspect]
     Indication: HERPES ZOSTER
     Dosage: 3200 MILLIGRAM; 3200 MG
     Route: 048
     Dates: start: 20120604, end: 20120606
  3. PLAVIX [Suspect]
     Route: 048
     Dates: start: 20111209, end: 20120606
  4. RIOPAN [Concomitant]
     Dates: start: 20120321, end: 20120606
  5. CITALOPRAM HYDROBROMIDE [Concomitant]
     Dates: start: 20050216, end: 20120606
  6. ONCO CARBIDE [Concomitant]
     Dates: start: 20050112, end: 20120606
  7. MONTEGEN [Concomitant]
     Dates: start: 20050225, end: 20120606
  8. FLUTICASONE PROPIONATE/SALMETEROL [Concomitant]
     Dosage: 25UG SALMETEROL/250UG FLUTICASONE
     Dates: start: 20050525, end: 20120606
  9. TORSEMIDE [Concomitant]
     Dates: start: 20101228, end: 20120606

REACTIONS (2)
  - ABDOMINAL PAIN [None]
  - HAEMATEMESIS [None]
